FAERS Safety Report 7720681-4 (Version None)
Quarter: 2011Q3

REPORT INFORMATION
  Report Type: 
  Country: None (occurrence: None)
  Receive Date: 20110831
  Receipt Date: 20110824
  Transmission Date: 20111222
  Serious: Yes (Other)
  Sender: FDA-Public Use
  Company Number: GB-B.I. PHARMACEUTICALS,INC./RIDGEFIELD-2011-UK-00779UK

PATIENT
  Age: 37 Year
  Sex: Female
  Weight: 103 kg

DRUGS (7)
  1. MONTELUKAST SODIUM [Suspect]
     Dosage: 10 MG
     Route: 048
     Dates: start: 20070101
  2. XOLAIR [Suspect]
     Indication: ASTHMA
     Dosage: 300MG 1/1MONTHS
     Route: 058
     Dates: start: 20091104, end: 20110504
  3. ALBUTEROL [Concomitant]
  4. CITALOPRAM HYDROBROMIDE [Concomitant]
  5. IPRATROPIUM BROMIDE [Suspect]
     Indication: ASTHMA
  6. FLUTICASONE PROPIONATE [Suspect]
     Indication: ASTHMA
     Dates: start: 20050101
  7. ATROVENT [Concomitant]

REACTIONS (6)
  - NERVOUS SYSTEM DISORDER [None]
  - DYSAESTHESIA [None]
  - SENSORY DISTURBANCE [None]
  - HEADACHE [None]
  - TRANSIENT ISCHAEMIC ATTACK [None]
  - HEMIPARESIS [None]
